FAERS Safety Report 16968953 (Version 2)
Quarter: 2020Q2

REPORT INFORMATION
  Report Type: Spontaneous
  Country: US (occurrence: US)
  Receive Date: 20191029
  Receipt Date: 20200526
  Transmission Date: 20200713
  Serious: No
  Sender: FDA-Public Use
  Company Number: US-SAGE-2019SAGE000057

PATIENT

DRUGS (1)
  1. ZULRESSO [Suspect]
     Active Substance: BREXANOLONE
     Indication: PERINATAL DEPRESSION
     Route: 065

REACTIONS (1)
  - Menstruation irregular [Unknown]
